FAERS Safety Report 7716528-2 (Version None)
Quarter: 2011Q3

REPORT INFORMATION
  Report Type: 
  Country: None (occurrence: None)
  Receive Date: 20110829
  Receipt Date: 20110801
  Transmission Date: 20111222
  Serious: No
  Sender: FDA-Public Use
  Company Number: US-ABBOTT-11P-163-0843373-00

PATIENT
  Sex: Male

DRUGS (3)
  1. ANDROGEL [Suspect]
     Dosage: 4 PUMPS DAILY
     Route: 061
     Dates: start: 20110501
  2. CIALIS [Concomitant]
     Indication: MALE SEXUAL DYSFUNCTION
     Dosage: AS NEEDED
  3. ANDROGEL [Suspect]
     Indication: BLOOD TESTOSTERONE DECREASED
     Dosage: 2 PUMPS DAILY
     Route: 061
     Dates: start: 20110101, end: 20110501

REACTIONS (3)
  - BLOOD TESTOSTERONE ABNORMAL [None]
  - DRUG ADMINISTERED AT INAPPROPRIATE SITE [None]
  - DISTURBANCE IN SEXUAL AROUSAL [None]
